FAERS Safety Report 8456592-9 (Version None)
Quarter: 2012Q2

REPORT INFORMATION
  Report Type: 
  Country: None (occurrence: None)
  Receive Date: 20120621
  Receipt Date: 20120618
  Transmission Date: 20120825
  Serious: Yes (Hospitalization)
  Sender: FDA-Public Use
  Company Number: AR-ROCHE-1080406

PATIENT
  Sex: Male

DRUGS (2)
  1. XOLAIR [Suspect]
     Dates: start: 20120401
  2. XOLAIR [Suspect]
     Indication: CHRONIC OBSTRUCTIVE PULMONARY DISEASE
     Dates: start: 20070101, end: 20120301

REACTIONS (1)
  - AORTIC DILATATION [None]
